FAERS Safety Report 8046412-9 (Version None)
Quarter: 2012Q1

REPORT INFORMATION
  Report Type: 
  Country: None (occurrence: None)
  Receive Date: 20120113
  Receipt Date: 20120109
  Transmission Date: 20120608
  Serious: Yes (Death)
  Sender: FDA-Public Use
  Company Number: FR-ASTRAZENECA-2011SE73947

PATIENT
  Age: 42 Year
  Sex: Male

DRUGS (5)
  1. TENORMIN [Suspect]
     Indication: CORONARY ARTERY INSUFFICIENCY
     Route: 048
     Dates: end: 20110731
  2. CRESTOR [Suspect]
     Indication: DYSLIPIDAEMIA
     Route: 048
     Dates: end: 20110731
  3. ASPIRIN [Suspect]
     Indication: CORONARY ANGIOPLASTY
     Route: 048
     Dates: start: 20110115, end: 20110731
  4. PLAVIX [Suspect]
     Route: 048
     Dates: start: 20110201, end: 20110731
  5. PLAVIX [Suspect]
     Indication: CORONARY ANGIOPLASTY
     Route: 048
     Dates: start: 20110115, end: 20110201

REACTIONS (1)
  - SUBARACHNOID HAEMORRHAGE [None]
